FAERS Safety Report 12756965 (Version 1)
Quarter: 2016Q3

REPORT INFORMATION
  Report Type: Spontaneous
  Country: ES (occurrence: ES)
  Receive Date: 20160917
  Receipt Date: 20160917
  Transmission Date: 20161109
  Serious: Yes (Life-Threatening)
  Sender: FDA-Public Use
  Company Number: PHHY2016ES127436

PATIENT
  Age: 70 Year
  Sex: Female

DRUGS (5)
  1. SANDIMMUN NEORAL [Suspect]
     Active Substance: CYCLOSPORINE
     Indication: COLITIS ULCERATIVE
     Dosage: 100 MG, BID
     Route: 048
     Dates: start: 20131019, end: 20131022
  2. MESALAZINE [Concomitant]
     Active Substance: MESALAMINE
     Indication: COLITIS ULCERATIVE
     Dosage: 1 G, BID
     Route: 048
     Dates: start: 20131017
  3. SULFAMETOXAZOL + TRIMETOPRIMA [Suspect]
     Active Substance: SULFAMETHOXAZOLE\TRIMETHOPRIM
     Indication: INFECTION
     Dosage: 800 MG, QD
     Route: 048
     Dates: start: 20131017, end: 20131028
  4. REMICADE [Concomitant]
     Active Substance: INFLIXIMAB
     Indication: COLITIS ULCERATIVE
     Dosage: 225 MG, CYCLIC (EVERY 6 DAYS)
     Route: 042
     Dates: start: 20131023
  5. METHOTREXATE. [Suspect]
     Active Substance: METHOTREXATE
     Indication: COLITIS ULCERATIVE
     Dosage: 25 MG, QD
     Route: 058
     Dates: start: 20131016, end: 20131024

REACTIONS (1)
  - Agranulocytosis [Recovered/Resolved]

NARRATIVE: CASE EVENT DATE: 20131028
